FAERS Safety Report 10195284 (Version 1)
Quarter: 2014Q2

REPORT INFORMATION
  Report Type: Spontaneous
  Country: FR (occurrence: FR)
  Receive Date: 20140526
  Receipt Date: 20140526
  Transmission Date: 20141212
  Serious: Yes (Hospitalization)
  Sender: FDA-Public Use
  Company Number: FR-JNJFOC-20140513024

PATIENT
  Age: 85 Year
  Sex: Female

DRUGS (6)
  1. XARELTO [Suspect]
     Indication: ATRIAL FIBRILLATION
     Route: 048
     Dates: start: 20121127, end: 20140212
  2. XARELTO [Suspect]
     Indication: CEREBROVASCULAR ACCIDENT PROPHYLAXIS
     Route: 048
     Dates: start: 20121127, end: 20140212
  3. CERIS [Concomitant]
     Indication: URINARY INCONTINENCE
     Route: 048
     Dates: start: 201401
  4. AMIODARONE [Concomitant]
     Indication: ARRHYTHMIA
     Route: 048
     Dates: start: 20121127
  5. TAHOR [Concomitant]
     Indication: BLOOD CHOLESTEROL
     Dosage: IN THE EVENING
     Route: 048
     Dates: start: 201212
  6. HYDROCHLOROTHIAZIDE W/IRBESARTAN [Concomitant]
     Indication: HYPERTENSION
     Dosage: 300/12, QD IN THE MORNING
     Route: 048
     Dates: start: 201210

REACTIONS (3)
  - Quadriplegia [Recovering/Resolving]
  - Extradural haematoma [Recovering/Resolving]
  - Quadriparesis [Recovering/Resolving]
